FAERS Safety Report 10563957 (Version 3)
Quarter: 2014Q4

REPORT INFORMATION
  Report Type: Spontaneous
  Country: CN (occurrence: CN)
  Receive Date: 20141104
  Receipt Date: 20141114
  Transmission Date: 20150529
  Serious: Yes (Hospitalization, Other)
  Sender: FDA-Public Use
  Company Number: CN-BRISTOL-MYERS SQUIBB COMPANY-21550512

PATIENT
  Age: 50 Year
  Sex: Male

DRUGS (2)
  1. DIAMMONIUM GLYCYRRHIZINATE [Suspect]
     Active Substance: HERBALS
     Indication: TRANSAMINASES INCREASED
     Route: 048
     Dates: start: 20140307, end: 20140419
  2. BARACLUDE [Suspect]
     Active Substance: ENTECAVIR
     Indication: CHRONIC HEPATITIS B
     Route: 048
     Dates: start: 20140307, end: 20140420

REACTIONS (2)
  - Rhabdomyolysis [Recovered/Resolved]
  - Hypokalaemia [Recovered/Resolved]

NARRATIVE: CASE EVENT DATE: 20140419
